FAERS Safety Report 6238165-1 (Version None)
Quarter: 2009Q2

REPORT INFORMATION
  Report Type: 
  Country: None (occurrence: None)
  Receive Date: 20090617
  Receipt Date: 20090617
  Transmission Date: 20091009
  Serious: Yes (Other)
  Sender: FDA-Public Use
  Company Number: None

PATIENT
  Age: 50 Year
  Sex: Female
  Weight: 90.7194 kg

DRUGS (4)
  1. REMERON [Suspect]
     Indication: DEPRESSION
     Dosage: 15ML DOWN TO 7.5 ML BEDTIME
     Dates: start: 20090519, end: 20090615
  2. REMERON [Suspect]
     Indication: PAIN
     Dosage: 15ML DOWN TO 7.5 ML BEDTIME
     Dates: start: 20090519, end: 20090615
  3. REMERON [Suspect]
     Indication: DEPRESSION
     Dosage: 15ML DOWN TO 7.5 ML BEDTIME
     Dates: start: 20090615, end: 20090615
  4. REMERON [Suspect]
     Indication: PAIN
     Dosage: 15ML DOWN TO 7.5 ML BEDTIME
     Dates: start: 20090615, end: 20090615

REACTIONS (3)
  - ANGER [None]
  - EMOTIONAL DISTRESS [None]
  - HERPES ZOSTER OPHTHALMIC [None]
